FAERS Safety Report 10087125 (Version 1)
Quarter: 2014Q2

REPORT INFORMATION
  Report Type: Spontaneous
  Country: CA (occurrence: CA)
  Receive Date: 20140418
  Receipt Date: 20140418
  Transmission Date: 20141212
  Serious: Yes (Death, Other)
  Sender: FDA-Public Use
  Company Number: CA-NAPPMUNDI-CAN-2014-0004823

PATIENT
  Age: 80 Year
  Sex: Male

DRUGS (1)
  1. OXYCONTIN TABLETS [Suspect]
     Indication: PAIN
     Dosage: UNK
     Route: 065

REACTIONS (5)
  - Death [Fatal]
  - Subdural haematoma [Fatal]
  - Fall [Unknown]
  - Loss of consciousness [Fatal]
  - Dysarthria [Unknown]
